FAERS Safety Report 20303554 (Version 1)
Quarter: 2022Q1

REPORT INFORMATION
  Report Type: Spontaneous
  Country: US (occurrence: None)
  Receive Date: 20220105
  Receipt Date: 20220105
  Transmission Date: 20220423
  Serious: Yes (Hospitalization)
  Sender: FDA-Public Use
  Company Number: None

PATIENT
  Age: 5 Year
  Sex: Male

DRUGS (1)
  1. TOBRAMYCIN [Suspect]
     Active Substance: TOBRAMYCIN
     Indication: Chronic respiratory failure
     Dosage: OTHER QUANTITY : 1 VIAL;?FREQUENCY : TWICE A DAY;?OTHER ROUTE : NEBULIZED;?
     Route: 055
     Dates: start: 20211228

REACTIONS (2)
  - Norovirus infection [None]
  - Oxygen saturation decreased [None]

NARRATIVE: CASE EVENT DATE: 20211228
